FAERS Safety Report 12069586 (Version 2)
Quarter: 2016Q1

REPORT INFORMATION
  Report Type: Report from Study
  Country: BR (occurrence: BR)
  Receive Date: 20160211
  Receipt Date: 20160224
  Transmission Date: 20160526
  Serious: Yes (Hospitalization, Other)
  Sender: FDA-Public Use
  Company Number: PHHY2016BR016700

PATIENT
  Sex: Male
  Weight: 62 kg

DRUGS (2)
  1. CALCIUM [Concomitant]
     Active Substance: CALCIUM
     Indication: BONE DISORDER
     Dosage: 1 DF, QD (STARTED USING 3 YEARS AGO, STOPPED ON JAN 2015)
     Route: 048
     Dates: end: 201501
  2. DIOVAN [Suspect]
     Active Substance: VALSARTAN
     Indication: HYPERTENSION
     Dosage: 1 DF, QD
     Route: 048
     Dates: start: 2005

REACTIONS (3)
  - Osteoarthritis [Not Recovered/Not Resolved]
  - Cardiac disorder [Recovering/Resolving]
  - Myocardial rupture [Recovered/Resolved]
